FAERS Safety Report 12870427 (Version 1)
Quarter: 2016Q4

REPORT INFORMATION
  Report Type: Spontaneous
  Country: MY (occurrence: MY)
  Receive Date: 20161021
  Receipt Date: 20161021
  Transmission Date: 20170207
  Serious: Yes (Hospitalization)
  Sender: FDA-Public Use
  Company Number: MY-ASTRAZENECA-2016SF08665

PATIENT
  Sex: Female

DRUGS (2)
  1. BYDUREON [Suspect]
     Active Substance: EXENATIDE
     Route: 058
     Dates: start: 20160928, end: 20161012
  2. PAIN KILLER [Concomitant]
     Indication: BACK PAIN

REACTIONS (2)
  - Dyspnoea [Recovering/Resolving]
  - Angioedema [Recovering/Resolving]
